FAERS Safety Report 14862897 (Version 2)
Quarter: 2019Q2

REPORT INFORMATION
  Report Type: Spontaneous
  Country: CA (occurrence: CA)
  Receive Date: 20180508
  Receipt Date: 20190629
  Transmission Date: 20190711
  Serious: Yes (Death)
  Sender: FDA-Public Use
  Company Number: CA-TEVA-2018-CA-888554

PATIENT
  Age: 44 Year
  Sex: Male
  Weight: 78 kg

DRUGS (12)
  1. ALPRAZOLAM. [Suspect]
     Active Substance: ALPRAZOLAM
     Route: 048
  2. CIALIS [Concomitant]
     Active Substance: TADALAFIL
  3. TRAZODONE [Suspect]
     Active Substance: TRAZODONE HYDROCHLORIDE
     Route: 048
  4. PANTOPRAZOLE [Concomitant]
     Active Substance: PANTOPRAZOLE
     Dosage: OCCLUSIVE DRESSING TECHNIQUE
  5. ALCOHOL. [Suspect]
     Active Substance: ALCOHOL
     Route: 065
  6. ZOPICLONE [Suspect]
     Active Substance: ZOPICLONE
     Route: 048
  7. BUPROPION. [Concomitant]
     Active Substance: BUPROPION
  8. PAROXETINE. [Concomitant]
     Active Substance: PAROXETINE
  9. MORPHINE [Suspect]
     Active Substance: MORPHINE
     Route: 065
  10. MOMETASONE FUROATE. [Concomitant]
     Active Substance: MOMETASONE FUROATE
  11. DEXEDRINE [Concomitant]
     Active Substance: DEXTROAMPHETAMINE SULFATE
  12. SALBUTAMOL [Concomitant]
     Active Substance: ALBUTEROL

REACTIONS (3)
  - Toxicity to various agents [Fatal]
  - Postmortem blood drug level abnormal [Fatal]
  - Toxicologic test abnormal [Fatal]
